FAERS Safety Report 5497861-4 (Version None)
Quarter: 2007Q4

REPORT INFORMATION
  Report Type: 
  Country: None (occurrence: None)
  Receive Date: 20071023
  Receipt Date: 20070802
  Transmission Date: 20080405
  Serious: Yes (Hospitalization)
  Sender: FDA-Public Use
  Company Number: ZA200708001550

PATIENT
  Age: 65 Year
  Sex: Male
  Weight: 81 kg

DRUGS (19)
  1. ETOPOSIDE [Suspect]
     Indication: SMALL CELL LUNG CANCER STAGE UNSPECIFIED
     Dosage: SEE IMAGE
     Route: 042
     Dates: start: 20070417, end: 20070419
  2. ETOPOSIDE [Suspect]
     Indication: SMALL CELL LUNG CANCER STAGE UNSPECIFIED
     Dosage: SEE IMAGE
     Route: 042
     Dates: start: 20070515, end: 20070517
  3. ETOPOSIDE [Suspect]
     Indication: SMALL CELL LUNG CANCER STAGE UNSPECIFIED
     Dosage: SEE IMAGE
     Route: 042
     Dates: start: 20070612, end: 20070614
  4. ETOPOSIDE [Suspect]
     Indication: SMALL CELL LUNG CANCER STAGE UNSPECIFIED
     Dosage: SEE IMAGE
     Route: 042
     Dates: start: 20070703, end: 20070705
  5. ETOPOSIDE [Suspect]
     Indication: SMALL CELL LUNG CANCER STAGE UNSPECIFIED
     Dosage: SEE IMAGE
     Route: 042
     Dates: start: 20070731
  6. CARBOPLATIN [Suspect]
     Indication: SMALL CELL LUNG CANCER STAGE UNSPECIFIED
     Dosage: SEE IMAGE
     Route: 042
     Dates: start: 20070417, end: 20070419
  7. CARBOPLATIN [Suspect]
     Indication: SMALL CELL LUNG CANCER STAGE UNSPECIFIED
     Dosage: SEE IMAGE
     Route: 042
     Dates: start: 20070515, end: 20070517
  8. CARBOPLATIN [Suspect]
     Indication: SMALL CELL LUNG CANCER STAGE UNSPECIFIED
     Dosage: SEE IMAGE
     Route: 042
     Dates: start: 20070612, end: 20070614
  9. CARBOPLATIN [Suspect]
     Indication: SMALL CELL LUNG CANCER STAGE UNSPECIFIED
     Dosage: SEE IMAGE
     Route: 042
     Dates: start: 20070703, end: 20070705
  10. CARBOPLATIN [Suspect]
     Indication: SMALL CELL LUNG CANCER STAGE UNSPECIFIED
     Dosage: SEE IMAGE
     Route: 042
     Dates: start: 20070731
  11. CARBOPLATIN [Suspect]
  12. MORPHINE [Concomitant]
  13. SORBITOL (SORBITOL) [Concomitant]
  14. PANADEINE (CODEINE PHOSPHATE, PARACETAMOL) [Concomitant]
  15. AMITRIPTYLINE HCL [Concomitant]
  16. ANDOLEX (BENZYDAMINE HYDROCHLORIDE) [Concomitant]
  17. HALOPERIDOL [Concomitant]
  18. MAXOLON [Concomitant]
  19. ZOFRAN [Concomitant]

REACTIONS (9)
  - CONVULSION [None]
  - CREATININE RENAL CLEARANCE INCREASED [None]
  - HAEMATOCRIT DECREASED [None]
  - HAEMOGLOBIN DECREASED [None]
  - MEAN CELL HAEMOGLOBIN CONCENTRATION INCREASED [None]
  - MEAN CELL HAEMOGLOBIN INCREASED [None]
  - PLATELET COUNT INCREASED [None]
  - RED BLOOD CELL COUNT DECREASED [None]
  - RED CELL DISTRIBUTION WIDTH INCREASED [None]
